FAERS Safety Report 7960918-X (Version None)
Quarter: 2011Q4

REPORT INFORMATION
  Report Type: 
  Country: None (occurrence: None)
  Receive Date: 20111202
  Receipt Date: 20111121
  Transmission Date: 20120403
  Serious: Yes (Life-Threatening, Other)
  Sender: FDA-Public Use
  Company Number: 2011MA016758

PATIENT
  Age: 49 Year
  Sex: Male

DRUGS (4)
  1. OXCARBAMACEPIN (NO PREF. NAME) [Suspect]
  2. AMITRIPTYLINE HCL [Suspect]
  3. OXYCODONE HCL [Suspect]
     Indication: NECK INJURY
  4. OXYCODONE HCL [Suspect]
     Indication: SENSORIMOTOR DISORDER

REACTIONS (4)
  - INADEQUATE ANALGESIA [None]
  - ACUTE RESPIRATORY DISTRESS SYNDROME [None]
  - ORGANISING PNEUMONIA [None]
  - INTERSTITIAL LUNG DISEASE [None]
